FAERS Safety Report 12015031 (Version 1)
Quarter: 2016Q1

REPORT INFORMATION
  Report Type: Spontaneous
  Country: US (occurrence: US)
  Receive Date: 20160205
  Receipt Date: 20160205
  Transmission Date: 20160526
  Serious: No
  Sender: FDA-Public Use
  Company Number: US-AMGEN-USASP2015016203

PATIENT
  Sex: Female

DRUGS (4)
  1. NEULASTA [Suspect]
     Active Substance: PEGFILGRASTIM
     Indication: PRODUCT USED FOR UNKNOWN INDICATION
     Dosage: UNK
     Route: 065
  2. CYCLOPHOSPHAMIDE. [Concomitant]
     Active Substance: CYCLOPHOSPHAMIDE
     Dosage: UNK
     Dates: end: 201306
  3. TAXOTERE [Concomitant]
     Active Substance: DOCETAXEL
     Dosage: UNK
  4. ADRIAMYCIN [Concomitant]
     Active Substance: DOXORUBICIN HYDROCHLORIDE
     Dosage: UNK

REACTIONS (8)
  - Bone pain [Recovering/Resolving]
  - Glossitis [Recovered/Resolved]
  - Onycholysis [Unknown]
  - Paraesthesia [Not Recovered/Not Resolved]
  - Neuropathy peripheral [Unknown]
  - Onychomadesis [Recovered/Resolved]
  - Oral pain [Unknown]
  - Hypoaesthesia [Not Recovered/Not Resolved]
